FAERS Safety Report 4352891-0 (Version None)
Quarter: 2004Q2

REPORT INFORMATION
  Report Type: 
  Country: None (occurrence: None)
  Receive Date: 20040428
  Receipt Date: 20040406
  Transmission Date: 20050107
  Serious: Yes (Hospitalization)
  Sender: FDA-Public Use
  Company Number: B0329585A

PATIENT
  Age: 81 Year
  Sex: Male

DRUGS (3)
  1. VALTREX [Suspect]
     Indication: HERPES ZOSTER
     Dosage: 1000 MG / THREE TIMES PER DAY / ORAL
     Route: 048
  2. ZOVIRAX [Suspect]
     Dosage: 10 MG / KG / THREE TIMES PER DAY / INTRA,DAYS
     Route: 042
  3. HEMODIALYSIS [Concomitant]

REACTIONS (10)
  - CEREBRAL ATROPHY [None]
  - COMA [None]
  - CONFUSIONAL STATE [None]
  - DISORIENTATION [None]
  - ELECTROENCEPHALOGRAM ABNORMAL [None]
  - ENCEPHALITIS VIRAL [None]
  - HALLUCINATION, VISUAL [None]
  - MYOCLONUS [None]
  - NEUROTOXICITY [None]
  - NUCHAL RIGIDITY [None]
